FAERS Safety Report 25109383 (Version 1)
Quarter: 2025Q1

REPORT INFORMATION
  Report Type: Spontaneous
  Country: US (occurrence: US)
  Receive Date: 20250323
  Receipt Date: 20250323
  Transmission Date: 20250409
  Serious: No
  Sender: SANOFI AVENTIS
  Company Number: US-SA-2025SA083678

PATIENT
  Sex: Male

DRUGS (12)
  1. DUPIXENT [Suspect]
     Active Substance: DUPILUMAB
     Indication: Asthma
     Dosage: 300 MG, QOW
     Route: 058
  2. GABAPENTIN [Concomitant]
     Active Substance: GABAPENTIN
  3. LISINOPRIL [Concomitant]
     Active Substance: LISINOPRIL
  4. METOPROLOL SUCCINATE [Concomitant]
     Active Substance: METOPROLOL SUCCINATE
  5. OMEPRAZOLE [Concomitant]
     Active Substance: OMEPRAZOLE
  6. ROSUVASTATIN [Concomitant]
     Active Substance: ROSUVASTATIN
  7. TRELEGY ELLIPTA [Concomitant]
     Active Substance: FLUTICASONE FUROATE\UMECLIDINIUM BROMIDE\VILANTEROL TRIFENATATE
  8. ELIQUIS [Concomitant]
     Active Substance: APIXABAN
  9. LEVOTHYROXINE [Concomitant]
     Active Substance: LEVOTHYROXINE
  10. METFORMIN HYDROCHLORIDE [Concomitant]
     Active Substance: METFORMIN HYDROCHLORIDE
  11. MONTELUKAST [Concomitant]
     Active Substance: MONTELUKAST
  12. OZEMPIC [Concomitant]
     Active Substance: SEMAGLUTIDE

REACTIONS (3)
  - Tremor [Not Recovered/Not Resolved]
  - Dyspnoea [Not Recovered/Not Resolved]
  - Nasopharyngitis [Not Recovered/Not Resolved]
